FAERS Safety Report 19025276 (Version 1)
Quarter: 2021Q1

REPORT INFORMATION
  Report Type: Spontaneous
  Country: US (occurrence: US)
  Receive Date: 20210318
  Receipt Date: 20210318
  Transmission Date: 20210420
  Serious: Yes (Disabling)
  Sender: FDA-Public Use
  Company Number: None

PATIENT
  Age: 41 Year
  Sex: Female
  Weight: 67.5 kg

DRUGS (4)
  1. NORETHIDRONE BIRTH CONTROL [Concomitant]
  2. XANAX [Concomitant]
     Active Substance: ALPRAZOLAM
  3. VITAMIN D3 [Concomitant]
     Active Substance: CHOLECALCIFEROL
  4. OCREVUS [Suspect]
     Active Substance: OCRELIZUMAB
     Indication: MULTIPLE SCLEROSIS RELAPSE
     Dosage: ?          OTHER FREQUENCY:EVERY SIX MONTHS;?
     Route: 042

REACTIONS (6)
  - Contusion [None]
  - Gait disturbance [None]
  - Pain [None]
  - Joint swelling [None]
  - Staphylococcal skin infection [None]
  - Balance disorder [None]

NARRATIVE: CASE EVENT DATE: 20200718
